FAERS Safety Report 9523474 (Version 1)
Quarter: 2013Q3

REPORT INFORMATION
  Report Type: Spontaneous
  Country: IL (occurrence: IL)
  Receive Date: 20130913
  Receipt Date: 20130913
  Transmission Date: 20140515
  Serious: Yes (Life-Threatening)
  Sender: FDA-Public Use
  Company Number: PHHY2013IL100119

PATIENT
  Sex: Female

DRUGS (2)
  1. CARBOPLATIN [Suspect]
     Indication: HEPATOBLASTOMA
     Dosage: 250 MG/M2, UNK
  2. ETOPOSIDE [Suspect]
     Indication: HEPATOBLASTOMA
     Dosage: 75 MG/M2, UNK

REACTIONS (4)
  - Metabolic acidosis [Recovered/Resolved]
  - Sepsis [Recovered/Resolved]
  - Pneumonia [Recovered/Resolved]
  - Febrile neutropenia [Recovered/Resolved]
